FAERS Safety Report 25463425 (Version 1)
Quarter: 2025Q2

REPORT INFORMATION
  Report Type: Spontaneous
  Country: US (occurrence: US)
  Receive Date: 20250620
  Receipt Date: 20250620
  Transmission Date: 20250716
  Serious: No
  Sender: NEPHRON PHARMACEUTICALS CORPORATION
  Company Number: US-Nephron Pharmaceuticals Corporation-2179102

PATIENT
  Age: 65 Year
  Sex: Male

DRUGS (3)
  1. BUDESONIDE [Suspect]
     Active Substance: BUDESONIDE
     Indication: Asthma
  2. FORMOTEROL FUMARATE INHALATION SOLUTION [Interacting]
     Active Substance: FORMOTEROL FUMARATE
  3. ALBUTEROL [Interacting]
     Active Substance: ALBUTEROL

REACTIONS (1)
  - Palpitations [Recovered/Resolved]
